FAERS Safety Report 10182268 (Version 1)
Quarter: 2014Q2

REPORT INFORMATION
  Report Type: Report from Study
  Country: FR (occurrence: FR)
  Receive Date: 20140520
  Receipt Date: 20140520
  Transmission Date: 20141212
  Serious: Yes (Hospitalization)
  Sender: FDA-Public Use
  Company Number: FR-ROCHE-1402937

PATIENT
  Age: 64 Year
  Sex: Male

DRUGS (10)
  1. RITUXIMAB [Suspect]
     Indication: RHEUMATOID ARTHRITIS
     Dosage: DAY 1 (D1)
     Route: 041
     Dates: start: 20061102
  2. RITUXIMAB [Suspect]
     Dosage: DAY 15 (D15)
     Route: 041
     Dates: start: 20070510
  3. RITUXIMAB [Suspect]
     Dosage: SINGLE INFUSION
     Route: 041
     Dates: start: 20080214
  4. RITUXIMAB [Suspect]
     Dosage: SINGLE INFUSION
     Route: 041
     Dates: start: 20090703
  5. RITUXIMAB [Suspect]
     Dosage: DAY 1 (D1)
     Route: 041
     Dates: start: 20100531
  6. RITUXIMAB [Suspect]
     Dosage: DAY 15 (D15)
     Route: 041
     Dates: start: 20100611
  7. RITUXIMAB [Suspect]
     Dosage: SINGLE INFUSION
     Route: 041
     Dates: start: 20120221
  8. METHOTREXATE [Concomitant]
  9. CORTANCYL [Concomitant]
     Route: 065
  10. CORTANCYL [Concomitant]
     Route: 065

REACTIONS (3)
  - Peripheral ischaemia [Recovered/Resolved]
  - Bronchitis [Recovered/Resolved]
  - Lung infection [Unknown]
